FAERS Safety Report 22059329 (Version 1)
Quarter: 2023Q1

REPORT INFORMATION
  Report Type: Spontaneous
  Country: US (occurrence: None)
  Receive Date: 20230302
  Receipt Date: 20230302
  Transmission Date: 20230418
  Serious: Yes (Hospitalization)
  Sender: FDA-Public Use
  Company Number: None

PATIENT
  Age: 58 Year
  Sex: Male
  Weight: 67.5 kg

DRUGS (3)
  1. MESALAMINE [Suspect]
     Active Substance: MESALAMINE
     Indication: Colitis ulcerative
     Dates: start: 20221010, end: 20221225
  2. Centrum Muti Vitamin [Concomitant]
  3. PRILOSEC OTC [Concomitant]
     Active Substance: OMEPRAZOLE MAGNESIUM

REACTIONS (7)
  - Headache [None]
  - Dizziness [None]
  - Gastric disorder [None]
  - Nausea [None]
  - Balance disorder [None]
  - Dysstasia [None]
  - Product substitution issue [None]

NARRATIVE: CASE EVENT DATE: 20221107
